FAERS Safety Report 8589113-0 (Version None)
Quarter: 2012Q3

REPORT INFORMATION
  Report Type: 
  Country: None (occurrence: None)
  Receive Date: 20120813
  Receipt Date: 20120806
  Transmission Date: 20120928
  Serious: Yes (Death)
  Sender: FDA-Public Use
  Company Number: JP-ASTELLAS-2011JP009349

PATIENT
  Age: 77 Year
  Sex: Male

DRUGS (3)
  1. ITRACONAZOLE [Concomitant]
     Dosage: 200 MG, UNKNOWN/D
     Route: 065
  2. CORTICOSTEROID NOS [Concomitant]
     Route: 065
  3. FUNGUARD [Suspect]
     Indication: BRONCHOPULMONARY ASPERGILLOSIS
     Dosage: UNK
     Route: 065

REACTIONS (2)
  - DRUG INEFFECTIVE [None]
  - BRONCHOPULMONARY ASPERGILLOSIS [None]
